FAERS Safety Report 7998277-9 (Version None)
Quarter: 2011Q4

REPORT INFORMATION
  Report Type: 
  Country: None (occurrence: None)
  Receive Date: 20111221
  Receipt Date: 20110609
  Transmission Date: 20120403
  Serious: No
  Sender: FDA-Public Use
  Company Number: US-GLAXOSMITHKLINE-A0930938A

PATIENT
  Age: 62 Year
  Sex: Female

DRUGS (15)
  1. LOVAZA [Suspect]
     Indication: BLOOD TRIGLYCERIDES INCREASED
     Dosage: 4CAP PER DAY
     Route: 048
     Dates: start: 20100401, end: 20100601
  2. ASPIRIN [Concomitant]
  3. IMODIUM A-D [Concomitant]
  4. LIPITOR [Concomitant]
  5. PREVACID [Concomitant]
  6. FLOVENT [Concomitant]
  7. CARAFATE [Concomitant]
  8. VITAMIN D [Concomitant]
  9. ALBUTEROL [Concomitant]
  10. ATENOLOL [Concomitant]
  11. ALIGN [Concomitant]
  12. DIAZEPAM [Concomitant]
  13. ZANTAC [Concomitant]
  14. COZAAR [Concomitant]
  15. SYNTHROID [Concomitant]

REACTIONS (15)
  - DIARRHOEA [None]
  - ABDOMINAL PAIN UPPER [None]
  - LABILE HYPERTENSION [None]
  - NAUSEA [None]
  - PAIN IN EXTREMITY [None]
  - HEADACHE [None]
  - FATIGUE [None]
  - FALL [None]
  - ABDOMINAL DISTENSION [None]
  - DECREASED APPETITE [None]
  - SWELLING [None]
  - SPIDER VEIN [None]
  - DIZZINESS [None]
  - CONTUSION [None]
  - ILL-DEFINED DISORDER [None]
